FAERS Safety Report 17434777 (Version 1)
Quarter: 2020Q1

REPORT INFORMATION
  Report Type: Spontaneous
  Country: US (occurrence: US)
  Receive Date: 20200218
  Receipt Date: 20200218
  Transmission Date: 20200409
  Serious: Yes (Hospitalization)
  Sender: FDA-Public Use
  Company Number: None

PATIENT
  Age: 75 Year
  Sex: Male

DRUGS (14)
  1. CLARITIN [Concomitant]
     Active Substance: LORATADINE
  2. SPONOLACT TAB [Concomitant]
  3. TAMSULOSIN [Concomitant]
     Active Substance: TAMSULOSIN
  4. SILDENAFIL. [Suspect]
     Active Substance: SILDENAFIL
     Indication: PULMONARY ARTERIAL HYPERTENSION
     Route: 048
     Dates: start: 20190218
  5. ALBUTEROL. [Concomitant]
     Active Substance: ALBUTEROL
  6. GLUCOSAMIEN [Concomitant]
  7. PRILOSEC [Concomitant]
     Active Substance: OMEPRAZOLE MAGNESIUM
  8. SPIRIVA [Concomitant]
     Active Substance: TIOTROPIUM BROMIDE MONOHYDRATE
  9. ASPRIN [Concomitant]
     Active Substance: ASPIRIN
  10. SYMBICORT [Concomitant]
     Active Substance: BUDESONIDE\FORMOTEROL FUMARATE DIHYDRATE
  11. TORSEMIDE. [Concomitant]
     Active Substance: TORSEMIDE
  12. TYLENONL [Concomitant]
  13. METFORMIN [Concomitant]
     Active Substance: METFORMIN HYDROCHLORIDE
  14. MEOPROL SUC TAB [Concomitant]

REACTIONS (2)
  - Intestinal obstruction [None]
  - Urinary retention [None]

NARRATIVE: CASE EVENT DATE: 20200212
